FAERS Safety Report 23650628 (Version 1)
Quarter: 2024Q1

REPORT INFORMATION
  Report Type: Spontaneous
  Country: US (occurrence: None)
  Receive Date: 20240320
  Receipt Date: 20240320
  Transmission Date: 20240410
  Serious: No
  Sender: FDA-Public Use
  Company Number: US-ROCHE-3429752

PATIENT
  Age: 74 Year
  Sex: Female
  Weight: 70.37 kg

DRUGS (10)
  1. VABYSMO [Suspect]
     Active Substance: FARICIMAB\FARICIMAB-SVOA
     Indication: Neovascular age-related macular degeneration
     Route: 042
     Dates: start: 202306
  2. GABAPENTIN [Concomitant]
     Active Substance: GABAPENTIN
     Indication: Neuropathy peripheral
     Route: 048
  3. LEVOTHYROXINE [Concomitant]
     Active Substance: LEVOTHYROXINE\LEVOTHYROXINE SODIUM
     Route: 048
  4. PANTOPRAZOLE [Concomitant]
     Active Substance: PANTOPRAZOLE
     Indication: Dyspepsia
     Route: 048
  5. DULOXETINE [Concomitant]
     Active Substance: DULOXETINE
     Indication: Neuropathy peripheral
     Route: 048
  6. SUMATRIPTAN [Concomitant]
     Active Substance: SUMATRIPTAN
     Indication: Migraine
     Route: 048
  7. REPATHA [Concomitant]
     Active Substance: EVOLOCUMAB
     Indication: Blood cholesterol increased
     Route: 058
  8. BRIMONIDINE [Concomitant]
     Active Substance: BRIMONIDINE TARTRATE
     Route: 047
     Dates: start: 202306
  9. PREDNISOLONE [Concomitant]
     Active Substance: PREDNISOLONE
     Route: 047
     Dates: start: 202306, end: 20230912
  10. PREDNISOLONE [Concomitant]
     Active Substance: PREDNISOLONE
     Route: 047
     Dates: start: 20230912

REACTIONS (3)
  - Vitreous floaters [Not Recovered/Not Resolved]
  - Visual impairment [Not Recovered/Not Resolved]
  - Retinal artery occlusion [Not Recovered/Not Resolved]

NARRATIVE: CASE EVENT DATE: 20230601
